FAERS Safety Report 5150524-7 (Version None)
Quarter: 2006Q4

REPORT INFORMATION
  Report Type: 
  Country: None (occurrence: None)
  Receive Date: 20061114
  Receipt Date: 20061031
  Transmission Date: 20070319
  Serious: Yes (Hospitalization)
  Sender: FDA-Public Use
  Company Number: PHBS2006JP16923

PATIENT
  Age: 72 Year
  Sex: Female

DRUGS (7)
  1. VOLTAREN [Suspect]
     Indication: MYALGIA
     Dosage: 25 MG/DAY
     Route: 048
     Dates: start: 19981201
  2. VOLTAREN [Suspect]
     Dosage: 25 MG/DAY
     Route: 048
     Dates: start: 20000801, end: 20030401
  3. CYCLOCK [Concomitant]
  4. NORVASC [Concomitant]
  5. ASPIRIN [Concomitant]
  6. MEVALOTIN [Concomitant]
  7. SODIUM PICOSULFATE [Concomitant]

REACTIONS (6)
  - ARTHRALGIA [None]
  - ERYTHEMA [None]
  - ERYTHEMA OF EYELID [None]
  - HYPOAESTHESIA [None]
  - OCULOMUCOCUTANEOUS SYNDROME [None]
  - PAIN IN EXTREMITY [None]
